FAERS Safety Report 5321137-9 (Version None)
Quarter: 2007Q2

REPORT INFORMATION
  Report Type: 
  Country: None (occurrence: None)
  Receive Date: 20070510
  Receipt Date: 20070508
  Transmission Date: 20071010
  Serious: Yes (Other)
  Sender: FDA-Public Use
  Company Number: JP-BAYER-200710278BYL

PATIENT
  Age: 74 Year
  Sex: Female

DRUGS (5)
  1. AVELOX [Suspect]
     Indication: PHARYNGITIS
     Dosage: TOTAL DAILY DOSE: 200 MG  UNIT DOSE: 400 MG
     Route: 048
     Dates: start: 20070312, end: 20070315
  2. BROCIN CODEINE [Concomitant]
     Dosage: TOTAL DAILY DOSE: 4.5 ML
     Route: 048
     Dates: start: 20070312, end: 20070313
  3. PONTAL [Concomitant]
     Dosage: TOTAL DAILY DOSE: 250 MG  UNIT DOSE: 250 MG
     Route: 048
     Dates: start: 20070312, end: 20070316
  4. ONON [Concomitant]
     Dosage: TOTAL DAILY DOSE: 500 MG  UNIT DOSE: 112.5 MG
     Route: 048
     Dates: start: 20070312, end: 20070318
  5. SAWATENE [Concomitant]
     Dosage: TOTAL DAILY DOSE: 1000 MG  UNIT DOSE: 250 MG
     Route: 048
     Dates: start: 20070312, end: 20070318

REACTIONS (1)
  - FAECES DISCOLOURED [None]
